FAERS Safety Report 24399275 (Version 1)
Quarter: 2024Q4

REPORT INFORMATION
  Report Type: Spontaneous
  Country: CN (occurrence: CN)
  Receive Date: 20241004
  Receipt Date: 20241004
  Transmission Date: 20250115
  Serious: Yes (Other)
  Sender: NOVARTIS
  Company Number: CN-002147023-NVSC2024CN193322

PATIENT
  Age: 54 Year
  Sex: Female
  Weight: 57 kg

DRUGS (3)
  1. OXCARBAZEPINE [Suspect]
     Active Substance: OXCARBAZEPINE
     Indication: Antipsychotic therapy
     Dosage: 0.3 G, BID
     Route: 048
     Dates: start: 20240828, end: 20240929
  2. QUETIAPINE FUMARATE [Concomitant]
     Active Substance: QUETIAPINE FUMARATE
     Indication: Antipsychotic therapy
     Dosage: 0.1 G, BID
     Route: 048
     Dates: start: 20240825, end: 20240929
  3. METHYLCOBALAMIN [Concomitant]
     Active Substance: METHYLCOBALAMIN
     Indication: Symptomatic treatment
     Dosage: 0.5 MG, TID
     Route: 048
     Dates: start: 20240828, end: 20240929

REACTIONS (5)
  - Leukaemia [Recovering/Resolving]
  - Drug-induced liver injury [Recovering/Resolving]
  - Platelet count decreased [Recovering/Resolving]
  - Pyrexia [Recovering/Resolving]
  - Off label use [Unknown]

NARRATIVE: CASE EVENT DATE: 20240828
